FAERS Safety Report 14830866 (Version 1)
Quarter: 2018Q2

REPORT INFORMATION
  Report Type: Spontaneous
  Country: US (occurrence: US)
  Receive Date: 20180430
  Receipt Date: 20180430
  Transmission Date: 20180711
  Serious: No
  Sender: FDA-Public Use
  Company Number: US-SA-2018SA116378

PATIENT
  Age: 70 Year
  Sex: Male

DRUGS (3)
  1. PRALUENT [Suspect]
     Active Substance: ALIROCUMAB
     Indication: HYPERLIPIDAEMIA
     Dosage: FREQ: EVERY 4WEEKS
     Route: 058
  2. NIVOLUMAB [Concomitant]
     Active Substance: NIVOLUMAB
     Route: 065
  3. ALIROCUMAB PREFILLED PEN [Suspect]
     Active Substance: ALIROCUMAB
     Indication: HYPERLIPIDAEMIA
     Dosage: FREQ: EVERY 4 WEEKS

REACTIONS (3)
  - Nausea [Recovering/Resolving]
  - Herpes zoster [Recovering/Resolving]
  - Vasculitis [Recovering/Resolving]
